FAERS Safety Report 19196470 (Version 2)
Quarter: 2021Q2

REPORT INFORMATION
  Report Type: Report from Study
  Country: CA (occurrence: CA)
  Receive Date: 20210429
  Receipt Date: 20210518
  Transmission Date: 20210717
  Serious: Yes (Other)
  Sender: FDA-Public Use
  Company Number: CA-SA-2021SA138095

PATIENT
  Age: 15 Year
  Sex: Female

DRUGS (4)
  1. EMLA [Concomitant]
     Active Substance: LIDOCAINE\PRILOCAINE
     Route: 061
  2. DICLOFENAC [Concomitant]
     Active Substance: DICLOFENAC
     Indication: ARTHRALGIA
     Dosage: 10 % BID PRN
     Route: 065
  3. LARONIDASE [Suspect]
     Active Substance: LARONIDASE
     Indication: MUCOPOLYSACCHARIDOSIS I
     Dosage: 20.3 MG, QW
     Route: 041
     Dates: start: 20110509
  4. ACETAMINOPHEN. [Concomitant]
     Active Substance: ACETAMINOPHEN
     Dosage: 480 MG
     Route: 048

REACTIONS (10)
  - Hunger [Recovered/Resolved]
  - Infusion related reaction [Recovered/Resolved]
  - Anxiety [Recovered/Resolved]
  - Tremor [Recovered/Resolved]
  - Headache [Recovered/Resolved]
  - Type III immune complex mediated reaction [Unknown]
  - Blood pressure increased [Recovered/Resolved]
  - Fatigue [Recovered/Resolved]
  - Incorrect dose administered [Unknown]
  - Serum sickness-like reaction [Not Recovered/Not Resolved]

NARRATIVE: CASE EVENT DATE: 2021
